FAERS Safety Report 5319177-9 (Version None)
Quarter: 2007Q2

REPORT INFORMATION
  Report Type: 
  Country: None (occurrence: None)
  Receive Date: 20070508
  Receipt Date: 20070501
  Transmission Date: 20071010
  Serious: Yes (Hospitalization)
  Sender: FDA-Public Use
  Company Number: US-BAXTER-2007BH004051

PATIENT
  Sex: Male

DRUGS (6)
  1. DIANEAL [Suspect]
     Indication: PERITONEAL DIALYSIS
     Route: 033
  2. DIANEAL [Suspect]
     Indication: PERITONEAL DIALYSIS
     Route: 033
  3. DIANEAL [Suspect]
     Indication: PERITONEAL DIALYSIS
     Dosage: DOSE UNIT:UNKNOWN
     Route: 033
  4. EXTRANEAL [Suspect]
     Indication: PERITONEAL DIALYSIS
     Dosage: DOSE UNIT:UNKNOWN
     Route: 033
  5. AUGMENTIN                               /UNK/ [Concomitant]
     Indication: ABSCESS
     Dosage: DOSE UNIT:UNKNOWN
     Route: 065
  6. CLINDAMYCIN [Concomitant]
     Indication: ABSCESS
     Dosage: DOSE UNIT:UNKNOWN
     Route: 065

REACTIONS (6)
  - ABDOMINAL DISTENSION [None]
  - ABSCESS [None]
  - ANOREXIA [None]
  - CHILLS [None]
  - PERITONITIS [None]
  - PYREXIA [None]
